FAERS Safety Report 9335478 (Version 1)
Quarter: 2013Q2

REPORT INFORMATION
  Report Type: Spontaneous
  Country: CN (occurrence: CN)
  Receive Date: 20130605
  Receipt Date: 20130605
  Transmission Date: 20140414
  Serious: Yes (Other)
  Sender: FDA-Public Use
  Company Number: CN-ASTRAZENECA-2013SE39861

PATIENT
  Age: 76 Year
  Sex: Male

DRUGS (1)
  1. ROSUVASTATIN [Suspect]
     Route: 048
     Dates: start: 20120824

REACTIONS (7)
  - Myocardial ischaemia [Unknown]
  - Arteriosclerosis [Unknown]
  - Angina unstable [Unknown]
  - Bundle branch block [Unknown]
  - Arrhythmia [Unknown]
  - Atrial fibrillation [Unknown]
  - Ventricular tachycardia [Unknown]
